FAERS Safety Report 14373329 (Version 1)
Quarter: 2018Q1

REPORT INFORMATION
  Report Type: Spontaneous
  Country: US (occurrence: US)
  Receive Date: 20180109
  Receipt Date: 20180109
  Transmission Date: 20180509
  Serious: Yes (Life-Threatening)
  Sender: FDA-Public Use
  Company Number: None

PATIENT
  Age: 74 Year
  Sex: Male

DRUGS (1)
  1. LISINOPRIL. [Suspect]
     Active Substance: LISINOPRIL
     Indication: HYPERTENSION
     Route: 048
     Dates: start: 20151216, end: 20171028

REACTIONS (10)
  - Tongue disorder [None]
  - Bradycardia [None]
  - Protrusion tongue [None]
  - Cyanosis [None]
  - Drug dose omission [None]
  - Foaming at mouth [None]
  - Angioedema [None]
  - Apnoea [None]
  - Unresponsive to stimuli [None]
  - Inguinal hernia repair [None]

NARRATIVE: CASE EVENT DATE: 20171025
